FAERS Safety Report 6241227-6 (Version None)
Quarter: 2009Q2

REPORT INFORMATION
  Report Type: 
  Country: None (occurrence: None)
  Receive Date: 20090623
  Receipt Date: 20090616
  Transmission Date: 20091009
  Serious: Yes (Hospitalization)
  Sender: FDA-Public Use
  Company Number: JP-MERCK-0904USA04092

PATIENT
  Age: 70 Year
  Sex: Female
  Weight: 48 kg

DRUGS (3)
  1. PEPCID [Suspect]
     Indication: GASTRITIS
     Route: 048
     Dates: start: 20081226, end: 20090416
  2. SELBEX [Suspect]
     Indication: GASTRITIS
     Route: 048
     Dates: start: 20081114, end: 20090417
  3. GASMOTIN [Suspect]
     Indication: GASTRITIS
     Route: 048
     Dates: start: 20081226, end: 20090417

REACTIONS (1)
  - HEPATIC FUNCTION ABNORMAL [None]
